FAERS Safety Report 4682173-9 (Version None)
Quarter: 2005Q2

REPORT INFORMATION
  Report Type: 
  Country: None (occurrence: None)
  Receive Date: 20050606
  Receipt Date: 20050523
  Transmission Date: 20051028
  Serious: Yes (Hospitalization)
  Sender: FDA-Public Use
  Company Number: FR-AMGEN-UK136015

PATIENT
  Age: 50 Year
  Sex: Male

DRUGS (1)
  1. MIMPARA [Suspect]
     Indication: DRUG USE FOR UNKNOWN INDICATION
     Route: 048
     Dates: start: 20050515, end: 20050516

REACTIONS (4)
  - ACUTE RESPIRATORY FAILURE [None]
  - CARDIAC DISORDER [None]
  - CONVULSION [None]
  - LUNG DISORDER [None]
